FAERS Safety Report 8358083-2 (Version None)
Quarter: 2012Q2

REPORT INFORMATION
  Report Type: 
  Country: None (occurrence: None)
  Receive Date: 20120514
  Receipt Date: 20120507
  Transmission Date: 20120825
  Serious: Yes (Death, Other)
  Sender: FDA-Public Use
  Company Number: US-PURDUE-USA-2012-0086547

PATIENT
  Age: 9 Month
  Sex: Female

DRUGS (1)
  1. OXYCODONE HCL [Suspect]
     Indication: PRODUCT USED FOR UNKNOWN INDICATION

REACTIONS (6)
  - UNRESPONSIVE TO STIMULI [None]
  - SOMNOLENCE [None]
  - OVERDOSE [None]
  - ACCIDENTAL EXPOSURE [None]
  - RESPIRATORY ARREST [None]
  - FATIGUE [None]
